FAERS Safety Report 21477615 (Version 1)
Quarter: 2022Q4

REPORT INFORMATION
  Report Type: Spontaneous
  Country: US (occurrence: None)
  Receive Date: 20221018
  Receipt Date: 20221018
  Transmission Date: 20230112
  Serious: No
  Sender: FDA-Public Use
  Company Number: None

PATIENT
  Age: 73 Year
  Sex: Female

DRUGS (2)
  1. PROLIA [Suspect]
     Active Substance: DENOSUMAB
     Indication: Systemic lupus erythematosus
     Dosage: OTHER FREQUENCY : 6 MONTHS;?
     Route: 058
     Dates: start: 202204
  2. PROLIA [Suspect]
     Active Substance: DENOSUMAB
     Indication: Senile osteoporosis

REACTIONS (1)
  - Death [None]
